FAERS Safety Report 6096683-3 (Version None)
Quarter: 2009Q1

REPORT INFORMATION
  Report Type: 
  Country: None (occurrence: None)
  Receive Date: 20090227
  Receipt Date: 20090216
  Transmission Date: 20090719
  Serious: Yes (Hospitalization, Disabling)
  Sender: FDA-Public Use
  Company Number: DK-TEVA-185936ISR

PATIENT
  Sex: Male

DRUGS (13)
  1. METHOTREXATE [Suspect]
     Indication: PRECURSOR T-LYMPHOBLASTIC LYMPHOMA/LEUKAEMIA
     Dates: start: 19980101
  2. METHOTREXATE [Suspect]
     Dates: start: 19990101
  3. ETOPOSIDE [Suspect]
     Indication: PRECURSOR T-LYMPHOBLASTIC LYMPHOMA/LEUKAEMIA
     Dates: start: 19980101, end: 19981204
  4. ETOPOSIDE [Suspect]
     Dates: start: 19990101
  5. CYCLOPHOSPHAMIDE [Suspect]
     Indication: PRECURSOR T-LYMPHOBLASTIC LYMPHOMA/LEUKAEMIA
     Dates: start: 19980811, end: 19981204
  6. VINCRISTINE [Suspect]
     Indication: PRECURSOR T-LYMPHOBLASTIC LYMPHOMA/LEUKAEMIA
     Dates: start: 19980811, end: 19981204
  7. IFOSFAMIDE [Suspect]
     Indication: PRECURSOR T-LYMPHOBLASTIC LYMPHOMA/LEUKAEMIA
     Dates: start: 19980101, end: 19981204
  8. IFOSFAMIDE [Suspect]
     Dates: start: 19990101
  9. CYTARABINE [Suspect]
     Indication: PRECURSOR T-LYMPHOBLASTIC LYMPHOMA/LEUKAEMIA
     Dates: start: 19980101, end: 19981204
  10. CYTARABINE [Suspect]
     Dates: start: 19990101
  11. DOXORUBICIN HCL [Suspect]
     Indication: PRECURSOR T-LYMPHOBLASTIC LYMPHOMA/LEUKAEMIA
     Dates: start: 19980811, end: 19981204
  12. PREDNISONE [Suspect]
     Indication: PRECURSOR T-LYMPHOBLASTIC LYMPHOMA/LEUKAEMIA
     Dates: start: 19980811
  13. METHYLPREDNISOLONE 4MG TAB [Suspect]
     Indication: PRECURSOR T-LYMPHOBLASTIC LYMPHOMA/LEUKAEMIA
     Dates: start: 19990101

REACTIONS (2)
  - GASTROINTESTINAL NECROSIS [None]
  - OSTEONECROSIS [None]
